FAERS Safety Report 25455605 (Version 1)
Quarter: 2025Q2

REPORT INFORMATION
  Report Type: Spontaneous
  Country: CA (occurrence: CA)
  Receive Date: 20250619
  Receipt Date: 20250619
  Transmission Date: 20250717
  Serious: Yes (Life-Threatening, Hospitalization)
  Sender: FRESENIUS KABI
  Company Number: CA-FreseniusKabi-FK202508444

PATIENT
  Age: 7 Year
  Sex: Female
  Weight: 21 kg

DRUGS (1)
  1. PIPERACILLIN SODIUM\TAZOBACTAM SODIUM [Suspect]
     Active Substance: PIPERACILLIN SODIUM\TAZOBACTAM SODIUM
     Indication: Product used for unknown indication

REACTIONS (1)
  - Febrile neutropenia [Recovered/Resolved]
